FAERS Safety Report 18336347 (Version 2)
Quarter: 2021Q1

REPORT INFORMATION
  Report Type: Report from Study
  Country: US (occurrence: US)
  Receive Date: 20201001
  Receipt Date: 20210105
  Transmission Date: 20210419
  Serious: Yes (Hospitalization)
  Sender: FDA-Public Use
  Company Number: US-JNJFOC-A-NJ2019-188598

PATIENT
  Age: 81 Year
  Sex: Female
  Weight: 48 kg

DRUGS (24)
  1. UPTRAVI [Suspect]
     Active Substance: SELEXIPAG
     Dosage: 400 MCG, BID
     Route: 048
     Dates: start: 20190423
  2. ULTRAM ER [Concomitant]
     Active Substance: TRAMADOL HYDROCHLORIDE
  3. UPTRAVI [Suspect]
     Active Substance: SELEXIPAG
     Indication: PULMONARY ARTERIAL HYPERTENSION
     Dosage: 600 MCG, BID
     Route: 048
     Dates: start: 20190425, end: 20200624
  4. PRAVASTATIN SODIUM. [Concomitant]
     Active Substance: PRAVASTATIN SODIUM
  5. SYNTHROID [Concomitant]
     Active Substance: LEVOTHYROXINE SODIUM
  6. ZAROXOLYN [Concomitant]
     Active Substance: METOLAZONE
  7. REVATIO [Concomitant]
     Active Substance: SILDENAFIL CITRATE
  8. RIOCIGUAT. [Concomitant]
     Active Substance: RIOCIGUAT
     Dosage: UNK
     Dates: start: 201805, end: 2020
  9. TORSEMIDE. [Concomitant]
     Active Substance: TORSEMIDE
  10. UPTRAVI [Suspect]
     Active Substance: SELEXIPAG
     Dosage: 200 MCG AM AND 400 MCG PM
     Route: 048
     Dates: start: 20190425
  11. FLUTICASONE FUROATE W/VILANTEROL [Concomitant]
     Active Substance: FLUTICASONE FUROATE\VILANTEROL TRIFENATATE
  12. METOLAZONE. [Concomitant]
     Active Substance: METOLAZONE
  13. PROAMATINE [Concomitant]
     Active Substance: MIDODRINE HYDROCHLORIDE
  14. UPTRAVI [Suspect]
     Active Substance: SELEXIPAG
     Dosage: 200 MCG, BID
     Route: 048
  15. LIPITOR [Concomitant]
     Active Substance: ATORVASTATIN CALCIUM
  16. LEVOTHYROXINE. [Concomitant]
     Active Substance: LEVOTHYROXINE
  17. PLAVIX [Concomitant]
     Active Substance: CLOPIDOGREL BISULFATE
  18. ANORO [Concomitant]
     Active Substance: UMECLIDINIUM BROMIDE\VILANTEROL TRIFENATATE
  19. POTASSIUM CHLORIDE. [Concomitant]
     Active Substance: POTASSIUM CHLORIDE
  20. ASPIRIN (E.C.) [Concomitant]
     Active Substance: ASPIRIN
  21. PRILOSEC [Concomitant]
     Active Substance: OMEPRAZOLE MAGNESIUM
  22. ALLOPURINOL. [Concomitant]
     Active Substance: ALLOPURINOL
  23. FERROUS SULFATE. [Concomitant]
     Active Substance: FERROUS SULFATE
  24. MIDODRINE HYDROCHLORIDE. [Concomitant]
     Active Substance: MIDODRINE HYDROCHLORIDE

REACTIONS (27)
  - Acute kidney injury [Not Recovered/Not Resolved]
  - Condition aggravated [Recovered/Resolved]
  - Ulcer [Unknown]
  - Glomerular filtration rate decreased [Recovered/Resolved]
  - Confusional state [Unknown]
  - Renal failure [Recovered/Resolved]
  - Cardiac failure acute [Recovered/Resolved]
  - Anaemia [Recovered/Resolved]
  - Asthenia [Not Recovered/Not Resolved]
  - Renal impairment [Unknown]
  - Dehydration [Unknown]
  - Atrioventricular block complete [Recovered/Resolved]
  - Hospitalisation [Unknown]
  - Headache [Unknown]
  - Stent placement [Unknown]
  - Packed red blood cell transfusion [Unknown]
  - Nausea [Recovered/Resolved]
  - Fluid overload [Unknown]
  - Pain [Unknown]
  - Fall [Unknown]
  - Subdural haematoma [Unknown]
  - Right ventricular failure [Unknown]
  - Blood creatinine increased [Recovered/Resolved]
  - Diarrhoea [Recovered/Resolved]
  - Ascites [Unknown]
  - N-terminal prohormone brain natriuretic peptide increased [Recovered/Resolved]
  - Cardiac pacemaker insertion [Recovered/Resolved]

NARRATIVE: CASE EVENT DATE: 201905
